FAERS Safety Report 5220945-2 (Version None)
Quarter: 2007Q1

REPORT INFORMATION
  Report Type: 
  Country: None (occurrence: None)
  Receive Date: 20070124
  Receipt Date: 20070110
  Transmission Date: 20070707
  Serious: Yes (Other)
  Sender: FDA-Public Use
  Company Number: 15503

PATIENT
  Age: 65 Year
  Sex: Female
  Weight: 81 kg

DRUGS (2)
  1. VINCRISTINE [Suspect]
     Dates: start: 20031016, end: 20031016
  2. ADRIBLASTINE [Suspect]
     Dates: start: 20031016, end: 20031016

REACTIONS (2)
  - EXTRAVASATION [None]
  - FEELING COLD [None]
